FAERS Safety Report 25817750 (Version 1)
Quarter: 2025Q3

REPORT INFORMATION
  Report Type: Spontaneous
  Country: US (occurrence: None)
  Receive Date: 20250917
  Receipt Date: 20250917
  Transmission Date: 20251020
  Serious: Yes (Other)
  Sender: FDA-CTU
  Company Number: None

PATIENT
  Age: 79 Year
  Sex: Male
  Weight: 87 kg

DRUGS (2)
  1. LISINOPRIL [Suspect]
     Active Substance: LISINOPRIL
     Indication: Hypertension
     Dosage: FREQUENCY : DAILY;?
     Route: 048
     Dates: start: 20250821
  2. Oxycodone 10 mg [Concomitant]
     Dates: start: 20240415

REACTIONS (4)
  - Product dispensing error [None]
  - Drug ineffective [None]
  - Dizziness [None]
  - Wrong product administered [None]

NARRATIVE: CASE EVENT DATE: 20250827
